FAERS Safety Report 19961111 (Version 1)
Quarter: 2021Q4

REPORT INFORMATION
  Report Type: Report from Study
  Country: ZA (occurrence: ZA)
  Receive Date: 20211016
  Receipt Date: 20211016
  Transmission Date: 20220303
  Serious: Yes (Hospitalization, Other)
  Sender: FDA-Public Use
  Company Number: ZA-NOVARTISPH-NVSC2021ZA232543

PATIENT
  Sex: Male

DRUGS (6)
  1. METFORMIN [Suspect]
     Active Substance: METFORMIN HYDROCHLORIDE
     Indication: Diabetes mellitus
     Dosage: 500 MG, BID
     Route: 048
  2. CARVEDILOL [Concomitant]
     Active Substance: CARVEDILOL
     Indication: Product used for unknown indication
     Dosage: 6.25 MG, BID
     Route: 065
  3. ECOTRIN [Concomitant]
     Active Substance: ASPIRIN
     Indication: Product used for unknown indication
     Dosage: 81 MG, QD
     Route: 065
  4. PHARMAPRESS [Concomitant]
     Indication: Product used for unknown indication
     Dosage: 5 MG, BID
     Route: 065
  5. ALLOPURINOL [Concomitant]
     Active Substance: ALLOPURINOL
     Indication: Product used for unknown indication
     Dosage: 100 MG, QD
     Route: 065
  6. REDAC [Concomitant]
     Indication: Product used for unknown indication
     Dosage: 12.5 MG, QD
     Route: 065

REACTIONS (5)
  - Fatigue [Unknown]
  - Oedema [Unknown]
  - Cardiac failure congestive [Unknown]
  - Oesophageal carcinoma [Unknown]
  - Cardiomyopathy [Unknown]
